FAERS Safety Report 5831753-3 (Version None)
Quarter: 2008Q3

REPORT INFORMATION
  Report Type: 
  Country: None (occurrence: None)
  Receive Date: 20080803
  Receipt Date: 20080724
  Transmission Date: 20090109
  Serious: Yes (Other)
  Sender: FDA-Public Use
  Company Number: PHHY2008JP11465

PATIENT
  Age: 71 Year
  Sex: Male

DRUGS (4)
  1. DIOVAN [Suspect]
     Indication: HYPERTENSION
     Dosage: 80 MG, UNK
     Route: 048
     Dates: start: 20080501, end: 20080610
  2. BUFFERIN [Concomitant]
     Dosage: UNK
     Dates: start: 20050401
  3. ADALAT [Concomitant]
     Dosage: UNK
  4. PERSANTINE [Concomitant]
     Dosage: UNK

REACTIONS (5)
  - ANAEMIA [None]
  - BLOOD UREA INCREASED [None]
  - GASTROINTESTINAL HAEMORRHAGE [None]
  - HAEMOGLOBIN DECREASED [None]
  - MELAENA [None]
